FAERS Safety Report 21632934 (Version 1)
Quarter: 2022Q4

REPORT INFORMATION
  Report Type: Report from Study
  Country: US (occurrence: US)
  Receive Date: 20221123
  Receipt Date: 20221123
  Transmission Date: 20230112
  Serious: No
  Sender: FDA-Public Use
  Company Number: US-ABBVIE-22K-163-4468203-00

PATIENT
  Sex: Male

DRUGS (1)
  1. VENCLEXTA [Suspect]
     Active Substance: VENETOCLAX
     Indication: Chronic lymphocytic leukaemia
     Route: 048
     Dates: start: 201810

REACTIONS (10)
  - Night sweats [Unknown]
  - Dysphonia [Unknown]
  - Fall [Unknown]
  - Chest discomfort [Unknown]
  - Blood pressure increased [Unknown]
  - Depersonalisation/derealisation disorder [Unknown]
  - Decreased appetite [Unknown]
  - Weight decreased [Unknown]
  - Prostatic specific antigen increased [Unknown]
  - Hypotension [Unknown]
